FAERS Safety Report 14734336 (Version 1)
Quarter: 2018Q2

REPORT INFORMATION
  Report Type: Spontaneous
  Country: HK (occurrence: HK)
  Receive Date: 20180409
  Receipt Date: 20180409
  Transmission Date: 20180711
  Serious: Yes (Death, Hospitalization, Other)
  Sender: FDA-Public Use
  Company Number: HK-MYLANLABS-2018M1021728

PATIENT
  Age: 67 Year
  Sex: Female
  Weight: 60.9 kg

DRUGS (8)
  1. METHYLDOPA. [Suspect]
     Active Substance: METHYLDOPA
     Indication: HYPERTENSION
     Dosage: 250 MG, BID
     Route: 048
     Dates: start: 20140904, end: 20160706
  2. METHYLDOPA. [Suspect]
     Active Substance: METHYLDOPA
     Dosage: 10 MG, BID
     Route: 048
     Dates: start: 20160806, end: 20160810
  3. METHYLDOPA. [Suspect]
     Active Substance: METHYLDOPA
     Dosage: 500 MG, BID
     Route: 048
     Dates: start: 20160707, end: 20160805
  4. SIMVASTATIN. [Suspect]
     Active Substance: SIMVASTATIN
     Indication: HYPERLIPIDAEMIA
     Dosage: UNK
     Dates: start: 20140904
  5. ATENOLOL. [Concomitant]
     Active Substance: ATENOLOL
     Dosage: UNK
     Dates: start: 20040107
  6. INVESTIGATIONAL DRUG/ FOSTAMATINIB [Suspect]
     Active Substance: FOSTAMATINIB
     Indication: IGA NEPHROPATHY
     Dosage: 150 MG, BID
  7. AMLODIPINE BESYLATE. [Concomitant]
     Active Substance: AMLODIPINE BESYLATE
  8. LOSARTAN POTASSIUM. [Concomitant]
     Active Substance: LOSARTAN POTASSIUM
     Dosage: UNK
     Dates: start: 201309

REACTIONS (3)
  - Septic shock [Fatal]
  - Peptic ulcer perforation [Fatal]
  - Hepatic enzyme abnormal [Fatal]

NARRATIVE: CASE EVENT DATE: 2016
